FAERS Safety Report 10248015 (Version 1)
Quarter: 2014Q2

REPORT INFORMATION
  Report Type: Spontaneous
  Country: US (occurrence: US)
  Receive Date: 20140619
  Receipt Date: 20140619
  Transmission Date: 20141212
  Serious: Yes (Hospitalization, Congenital Anomaly, Other)
  Sender: FDA-Public Use
  Company Number: US-JNJFOC-20140612342

PATIENT
  Sex: Female

DRUGS (1)
  1. TOPAMAX [Suspect]
     Indication: PRODUCT USED FOR UNKNOWN INDICATION
     Dosage: MOTHER^S DOSING
     Route: 048

REACTIONS (4)
  - Premature baby [Not Recovered/Not Resolved]
  - Atrial septal defect [Recovering/Resolving]
  - Pulmonary valve stenosis [Recovering/Resolving]
  - Foetal exposure during pregnancy [Recovered/Resolved]
